FAERS Safety Report 9972932 (Version 1)
Quarter: 2014Q1

REPORT INFORMATION
  Report Type: Report from Study
  Country: NL (occurrence: NL)
  Receive Date: 20140306
  Receipt Date: 20140306
  Transmission Date: 20141002
  Serious: Yes (Other)
  Sender: FDA-Public Use
  Company Number: NL-B.I. PHARMACEUTICALS,INC./RIDGEFIELD-2014-BI-09853NL

PATIENT
  Age: 68 Year
  Sex: Female

DRUGS (3)
  1. PRADAXA [Suspect]
     Indication: ATRIAL FIBRILLATION
     Dosage: 300 MG
     Route: 065
     Dates: start: 20140205, end: 20140212
  2. SIMVASTATIN [Concomitant]
     Dosage: 40 MG
     Route: 065
  3. SOTALOL [Concomitant]
     Dosage: 120 MG
     Route: 065

REACTIONS (2)
  - Visual acuity reduced [Not Recovered/Not Resolved]
  - Retinal vascular thrombosis [Not Recovered/Not Resolved]
